FAERS Safety Report 11491925 (Version 1)
Quarter: 2015Q3

REPORT INFORMATION
  Report Type: Spontaneous
  Country: IT (occurrence: IT)
  Receive Date: 20150910
  Receipt Date: 20150910
  Transmission Date: 20151125
  Serious: Yes (Other)
  Sender: FDA-Public Use
  Company Number: IT-ALXN-A201401970AA

PATIENT

DRUGS (3)
  1. SOLIRIS [Suspect]
     Active Substance: ECULIZUMAB
     Indication: OFF LABEL USE
     Dosage: 1200 MG, ON WEEK 5
     Route: 042
  2. SOLIRIS [Suspect]
     Active Substance: ECULIZUMAB
     Dosage: 1200 MG, Q2W
     Route: 042
  3. SOLIRIS [Suspect]
     Active Substance: ECULIZUMAB
     Indication: GLOMERULONEPHRITIS MEMBRANOPROLIFERATIVE
     Dosage: 900 MG, QW X 4 WEEKS
     Route: 042

REACTIONS (9)
  - Proteinuria [Recovering/Resolving]
  - Blood albumin decreased [Unknown]
  - Glomerulonephritis [Unknown]
  - Renal atrophy [Unknown]
  - Haematuria [Recovered/Resolved]
  - Nephrosclerosis [Unknown]
  - Off label use [Unknown]
  - Protein total decreased [Unknown]
  - Complement factor C3 decreased [Unknown]
